FAERS Safety Report 11500675 (Version 2)
Quarter: 2016Q1

REPORT INFORMATION
  Report Type: Report from Study
  Country: DE (occurrence: DE)
  Receive Date: 20150914
  Receipt Date: 20160223
  Transmission Date: 20160525
  Serious: Yes (Hospitalization)
  Sender: FDA-Public Use
  Company Number: DE-ROCHE-1633895

PATIENT
  Age: 76 Year
  Sex: Female

DRUGS (12)
  1. RITUXIMAB [Suspect]
     Active Substance: RITUXIMAB
     Indication: RHEUMATOID ARTHRITIS
     Dosage: ON 23/JUN/2014, RECEIVED LAST 500 MG DOSE PRIOR TO EVENT.
     Route: 065
     Dates: end: 20140623
  2. METFORMIN [Concomitant]
     Active Substance: METFORMIN HYDROCHLORIDE
     Indication: TYPE 2 DIABETES MELLITUS
     Route: 065
     Dates: start: 201411
  3. DELIX (GERMANY) [Concomitant]
  4. LEFLUNOMID [Suspect]
     Active Substance: LEFLUNOMIDE
     Indication: RHEUMATOID ARTHRITIS
     Route: 065
     Dates: end: 201204
  5. AMLODIPIN [Concomitant]
     Active Substance: AMLODIPINE BESYLATE
  6. LISINOPRIL. [Concomitant]
     Active Substance: LISINOPRIL
     Indication: HYPERTENSION
     Route: 065
     Dates: start: 201312
  7. L-THYROXIN [Concomitant]
     Active Substance: LEVOTHYROXINE SODIUM
  8. PANTOZOL [Concomitant]
     Active Substance: PANTOPRAZOLE SODIUM
  9. ARIXTRA [Concomitant]
     Active Substance: FONDAPARINUX SODIUM
  10. IBUPROFEN. [Concomitant]
     Active Substance: IBUPROFEN
  11. SIMVAHEXAL [Concomitant]
     Active Substance: SIMVASTATIN
  12. PLAVIX [Concomitant]
     Active Substance: CLOPIDOGREL BISULFATE
     Dosage: FOR SIX MONTHS
     Route: 065

REACTIONS (1)
  - Ischaemic stroke [Not Recovered/Not Resolved]

NARRATIVE: CASE EVENT DATE: 20141121
